FAERS Safety Report 4581922-8 (Version None)
Quarter: 2005Q1

REPORT INFORMATION
  Report Type: 
  Country: None (occurrence: None)
  Receive Date: 20050214
  Receipt Date: 20040406
  Transmission Date: 20050727
  Serious: Yes (Hospitalization, Other)
  Sender: FDA-Public Use
  Company Number: US-GLAXOSMITHKLINE-A0506127A

PATIENT
  Age: 49 Year
  Sex: Female
  Weight: 175 kg

DRUGS (11)
  1. LAMICTAL [Suspect]
     Indication: BIPOLAR DISORDER
     Dosage: 100MG THREE TIMES PER DAY
     Route: 048
  2. WELLBUTRIN SR [Suspect]
     Indication: BIPOLAR DISORDER
     Dosage: 450MG PER DAY
     Route: 048
  3. TOPAMAX [Concomitant]
  4. LEVOTHROID [Concomitant]
  5. REGLAN [Concomitant]
  6. SINGULAIR [Concomitant]
  7. CYTOMEL [Concomitant]
  8. INSULIN [Concomitant]
  9. COREG [Concomitant]
  10. ALLEGRA-D [Concomitant]
  11. IRON [Concomitant]

REACTIONS (1)
  - ANAEMIA [None]
